FAERS Safety Report 8667485 (Version 3)
Quarter: 2012Q4

REPORT INFORMATION
  Report Type: 
  Country: JP (occurrence: JP)
  Receive Date: 20120717
  Receipt Date: 20121012
  Transmission Date: 20130627
  Serious: Yes (Other)
  Sender: FDA-Public Use
  Company Number: JP-009507513-1207JPN000102

PATIENT
  Age: 79 Year
  Sex: Male

DRUGS (3)
  1. GLACTIV [Suspect]
     Indication: TYPE 2 DIABETES MELLITUS
     Dosage: 50 mg, qd
     Route: 048
     Dates: start: 20100426, end: 20120621
  2. REZALTAS [Suspect]
     Indication: HYPERTENSION
     Dosage: 1 DF, qd
     Route: 048
     Dates: start: 20101224, end: 20120621
  3. WARFARIN [Concomitant]
     Dosage: UNK
     Dates: start: 20110203

REACTIONS (1)
  - Interstitial lung disease [Recovered/Resolved]
